FAERS Safety Report 15314128 (Version 1)
Quarter: 2018Q3

REPORT INFORMATION
  Report Type: Report from Study
  Country: US (occurrence: US)
  Receive Date: 20180824
  Receipt Date: 20180824
  Transmission Date: 20181010
  Serious: Yes (Death)
  Sender: FDA-Public Use
  Company Number: PHHY2018US078777

PATIENT
  Sex: Male
  Weight: 89.5 kg

DRUGS (3)
  1. ZOMETA [Suspect]
     Active Substance: ZOLEDRONIC ACID
     Indication: METASTASES TO BONE
     Dosage: UNK UNK, Q4W (EVERY 4 WEEKS)
     Route: 042
     Dates: start: 20161230, end: 20180514
  2. MEKINIST [Suspect]
     Active Substance: TRAMETINIB DIMETHYL SULFOXIDE
     Indication: METASTATIC MALIGNANT MELANOMA
     Dosage: UNK, QD (DAILY)
     Route: 048
     Dates: start: 20150811, end: 20180514
  3. TAFINLAR [Suspect]
     Active Substance: DABRAFENIB MESYLATE
     Indication: METASTATIC MALIGNANT MELANOMA
     Dosage: UNK, BID (TWICE DAILY)
     Route: 048
     Dates: start: 20150811, end: 20180514

REACTIONS (3)
  - Malignant neoplasm progression [Fatal]
  - Metastatic malignant melanoma [Fatal]
  - Metastases to bone [Fatal]
